FAERS Safety Report 16914271 (Version 1)
Quarter: 2019Q4

REPORT INFORMATION
  Report Type: Spontaneous
  Country: US (occurrence: US)
  Receive Date: 20191014
  Receipt Date: 20191014
  Transmission Date: 20200122
  Serious: Yes (Other)
  Sender: FDA-Public Use
  Company Number: US-PFIZER INC-2019432623

PATIENT
  Age: 53 Year
  Sex: Male

DRUGS (10)
  1. AMIODARONE [Concomitant]
     Active Substance: AMIODARONE
     Indication: CORONARY ARTERY STENOSIS
     Dosage: UNK
  2. AMIODARONE [Concomitant]
     Active Substance: AMIODARONE
     Indication: CORONARY ARTERY OCCLUSION
  3. EPINEPHRINE. [Suspect]
     Active Substance: EPINEPHRINE
     Indication: CORONARY ARTERY OCCLUSION
  4. ABCIXIMAB [Concomitant]
     Active Substance: ABCIXIMAB
     Dosage: UNK
  5. EPINEPHRINE. [Suspect]
     Active Substance: EPINEPHRINE
     Indication: CORONARY ARTERY STENOSIS
     Dosage: UNK (PROGRESSIVE WEANING)
  6. ATROPINE. [Concomitant]
     Active Substance: ATROPINE
     Indication: BRADYCARDIA
  7. ATROPINE. [Concomitant]
     Active Substance: ATROPINE
     Indication: HYPOTENSION
     Dosage: UNK
  8. ATROPINE. [Concomitant]
     Active Substance: ATROPINE
     Indication: ATRIOVENTRICULAR BLOCK COMPLETE
  9. HEPARIN [Concomitant]
     Active Substance: HEPARIN SODIUM
     Dosage: UNK (INFUSION)
  10. ATORVASTATIN [Concomitant]
     Active Substance: ATORVASTATIN
     Dosage: UNK (HIGH-DOSE)

REACTIONS (2)
  - Shock [Recovering/Resolving]
  - Multiple organ dysfunction syndrome [Recovering/Resolving]
